FAERS Safety Report 4714144-8 (Version None)
Quarter: 2005Q3

REPORT INFORMATION
  Report Type: 
  Country: None (occurrence: None)
  Receive Date: 20050714
  Receipt Date: 20050705
  Transmission Date: 20060218
  Serious: Yes (Other)
  Sender: FDA-Public Use
  Company Number: JP-NOVOPROD-245423

PATIENT
  Age: 22 Year
  Sex: Female
  Weight: 44 kg

DRUGS (3)
  1. PENFILL N CHU [Suspect]
     Indication: DIABETES MELLITUS
     Dosage: 4 IE, UNK
     Dates: start: 20040711
  2. HUMALOG [Concomitant]
     Indication: DIABETES MELLITUS
     Dosage: 28 IE, UNK
     Dates: start: 20040711, end: 20040717
  3. BEZATOL - SLOW RELEASE [Concomitant]
     Indication: HYPERLIPIDAEMIA
     Dosage: 400 MG, UNK
     Dates: start: 20040711

REACTIONS (1)
  - OEDEMA [None]
